FAERS Safety Report 4575771-4 (Version None)
Quarter: 2005Q1

REPORT INFORMATION
  Report Type: 
  Country: None (occurrence: None)
  Receive Date: 20050209
  Receipt Date: 20041217
  Transmission Date: 20050727
  Serious: Yes (Hospitalization)
  Sender: FDA-Public Use
  Company Number: FR-SANOFI-SYNTHELABO-A02200403756

PATIENT
  Age: 67 Year
  Sex: Male

DRUGS (7)
  1. DEROXAT [Suspect]
     Indication: DEPRESSION
     Route: 048
     Dates: start: 20041005
  2. COPEGUS [Suspect]
     Indication: HEPATITIS C
     Route: 048
     Dates: start: 20041005, end: 20041101
  3. NISIS [Suspect]
     Indication: HYPERTENSION
     Route: 048
  4. STILNOX [Suspect]
     Indication: SLEEP DISORDER
     Route: 048
  5. PEGASYS [Suspect]
     Indication: HEPATITIS C
     Route: 058
     Dates: start: 20041005, end: 20041101
  6. PLAVIX [Suspect]
     Indication: DRUG USE FOR UNKNOWN INDICATION
     Route: 048
  7. LEVOTHYROXINE SODIUM [Suspect]
     Indication: DRUG USE FOR UNKNOWN INDICATION
     Route: 048

REACTIONS (5)
  - BACTERIAL INFECTION [None]
  - COUGH [None]
  - INTERSTITIAL LUNG DISEASE [None]
  - SARCOIDOSIS [None]
  - SUPERINFECTION LUNG [None]
